FAERS Safety Report 16945210 (Version 3)
Quarter: 2020Q1

REPORT INFORMATION
  Report Type: Spontaneous
  Country: JP (occurrence: JP)
  Receive Date: 20191022
  Receipt Date: 20200227
  Transmission Date: 20200409
  Serious: Yes (Hospitalization, Other)
  Sender: FDA-Public Use
  Company Number: JP-009507513-1910JPN002804J

PATIENT
  Age: 67 Year
  Sex: Male
  Weight: 65 kg

DRUGS (4)
  1. INSULIN DEGLUDEC [Suspect]
     Active Substance: INSULIN DEGLUDEC
     Indication: TYPE 2 DIABETES MELLITUS
     Dosage: 14 IU INTERNATIONAL UNIT(S), QD
     Route: 042
     Dates: start: 2015
  2. ROSUVASTATIN CALCIUM. [Concomitant]
     Active Substance: ROSUVASTATIN CALCIUM
     Dosage: 2.5 MILLIGRAM,AFTER BREAKFAST
     Route: 048
  3. INSULIN GLULISINE [Suspect]
     Active Substance: INSULIN GLULISINE
     Indication: TYPE 2 DIABETES MELLITUS
     Dosage: 17 IU INTERNATIONAL UNIT(S), QD
     Route: 042
     Dates: start: 2013
  4. GLACTIV [Suspect]
     Active Substance: SITAGLIPTIN
     Indication: TYPE 2 DIABETES MELLITUS
     Dosage: 50 MILLIGRAM, QD
     Route: 048
     Dates: start: 2011, end: 20170802

REACTIONS (2)
  - Hepatic enzyme increased [Recovered/Resolved]
  - Seronegative arthritis [Recovered/Resolved]

NARRATIVE: CASE EVENT DATE: 20161126
